FAERS Safety Report 9539256 (Version 2)
Quarter: 2013Q4

REPORT INFORMATION
  Report Type: Report from Study
  Country: US (occurrence: US)
  Receive Date: 20130920
  Receipt Date: 20131129
  Transmission Date: 20140711
  Serious: Yes (Other)
  Sender: FDA-Public Use
  Company Number: US-SANOFI-AVENTIS-2013SA091648

PATIENT
  Sex: Female

DRUGS (1)
  1. AUBAGIO [Suspect]
     Indication: MULTIPLE SCLEROSIS
     Route: 065

REACTIONS (4)
  - Thyroid neoplasm [Unknown]
  - Fatigue [Unknown]
  - Alopecia [Unknown]
  - Multiple sclerosis relapse [Unknown]
